FAERS Safety Report 23923286 (Version 1)
Quarter: 2024Q2

REPORT INFORMATION
  Report Type: Spontaneous
  Country: IN (occurrence: None)
  Receive Date: 20240531
  Receipt Date: 20240531
  Transmission Date: 20240716
  Serious: Yes (Death, Other)
  Sender: FDA-Public Use
  Company Number: IN-ROCHE-3524655

PATIENT
  Age: 43 Year
  Sex: Female

DRUGS (2)
  1. TECENTRIQ [Suspect]
     Active Substance: ATEZOLIZUMAB
     Indication: Small intestine adenocarcinoma
     Route: 042
     Dates: start: 20240307
  2. TECENTRIQ [Suspect]
     Active Substance: ATEZOLIZUMAB
     Route: 042
     Dates: start: 20240307

REACTIONS (6)
  - Death [Fatal]
  - Disease progression [Unknown]
  - Metastatic neoplasm [Unknown]
  - Off label use [Unknown]
  - Alopecia [Unknown]
  - Weight decreased [Unknown]
